FAERS Safety Report 13385460 (Version 13)
Quarter: 2020Q4

REPORT INFORMATION
  Report Type: Spontaneous
  Country: US (occurrence: US)
  Receive Date: 20170330
  Receipt Date: 20201028
  Transmission Date: 20210113
  Serious: Yes (Hospitalization, Other)
  Sender: FDA-Public Use
  Company Number: US-INCYTE CORPORATION-2017IN002211

PATIENT

DRUGS (11)
  1. JAKAFI [Suspect]
     Active Substance: RUXOLITINIB
     Dosage: 15 MG, BID
     Route: 048
     Dates: start: 20160514
  2. BABY ASPIRIN [Concomitant]
     Active Substance: ASPIRIN
     Indication: PRODUCT USED FOR UNKNOWN INDICATION
     Dosage: UNK
     Route: 065
  3. ALLOPURINOL. [Concomitant]
     Active Substance: ALLOPURINOL
     Indication: PRODUCT USED FOR UNKNOWN INDICATION
     Dosage: UNK
     Route: 065
  4. JAKAFI [Suspect]
     Active Substance: RUXOLITINIB
     Dosage: 15 MG, BID
     Route: 048
  5. JAKAFI [Suspect]
     Active Substance: RUXOLITINIB
     Dosage: 15 MG, BID
     Route: 048
  6. CITALOPRAM [Concomitant]
     Active Substance: CITALOPRAM HYDROBROMIDE
     Indication: PRODUCT USED FOR UNKNOWN INDICATION
     Dosage: UNK
     Route: 065
  7. IBUPROFEN. [Concomitant]
     Active Substance: IBUPROFEN
     Indication: PRODUCT USED FOR UNKNOWN INDICATION
     Dosage: PRN
     Route: 065
  8. JAKAFI [Suspect]
     Active Substance: RUXOLITINIB
     Indication: POLYCYTHAEMIA VERA
     Dosage: 10 MG, BID
     Route: 048
     Dates: start: 20160514
  9. JAKAFI [Suspect]
     Active Substance: RUXOLITINIB
     Dosage: 15 MILLIGRAM, BID
     Route: 048
     Dates: start: 2016
  10. BYSTOLIC [Concomitant]
     Active Substance: NEBIVOLOL HYDROCHLORIDE
     Indication: PRODUCT USED FOR UNKNOWN INDICATION
     Dosage: UNK
     Route: 065
  11. AMLODIPINE [Concomitant]
     Active Substance: AMLODIPINE BESYLATE
     Indication: PRODUCT USED FOR UNKNOWN INDICATION
     Route: 065

REACTIONS (33)
  - Dehydration [Recovering/Resolving]
  - Tooth extraction [Unknown]
  - Skin laceration [Unknown]
  - Chills [Unknown]
  - Gene mutation [Not Recovered/Not Resolved]
  - Overweight [Unknown]
  - Weight increased [Recovering/Resolving]
  - Disease progression [Not Recovered/Not Resolved]
  - Liver disorder [Unknown]
  - Gingivitis [Recovered/Resolved]
  - Eyelid disorder [Unknown]
  - Arthralgia [Unknown]
  - Gout [Recovering/Resolving]
  - Influenza [Unknown]
  - Hepatic cirrhosis [Unknown]
  - Hepatic function abnormal [Unknown]
  - Hypertension [Unknown]
  - Blood count abnormal [Recovering/Resolving]
  - Rib fracture [Unknown]
  - Janus kinase 2 mutation [Not Recovered/Not Resolved]
  - Polycythaemia vera [Not Recovered/Not Resolved]
  - Exercise lack of [Unknown]
  - Liver function test increased [Recovered/Resolved]
  - Hepatic steatosis [Unknown]
  - Product dose omission issue [Unknown]
  - Abscess oral [Recovering/Resolving]
  - Blood uric acid increased [Unknown]
  - Fall [Unknown]
  - Head injury [Unknown]
  - Sleep disorder [Unknown]
  - Malaise [Unknown]
  - Traumatic lung injury [Unknown]
  - Fatigue [Unknown]

NARRATIVE: CASE EVENT DATE: 20170314
